FAERS Safety Report 4279874-3 (Version None)
Quarter: 2004Q1

REPORT INFORMATION
  Report Type: 
  Country: None (occurrence: None)
  Receive Date: 20040126
  Receipt Date: 20040114
  Transmission Date: 20041129
  Serious: Yes (Hospitalization)
  Sender: FDA-Public Use
  Company Number: FR-JNJFOC-20040102593

PATIENT
  Age: 55 Year
  Sex: Female
  Weight: 48 kg

DRUGS (4)
  1. REMICADE [Suspect]
     Indication: ANKYLOSING SPONDYLITIS
     Dosage: 255 MG, INTRAVENOUS
     Route: 042
     Dates: start: 20030801, end: 20031203
  2. NORDAZ (NORDAZEPAM) [Concomitant]
  3. MYOLASTAN (TETRAZEPAM) [Concomitant]
  4. ACTIVEL (KLIOGEST ^NOVO INDUSTRI^) [Concomitant]

REACTIONS (1)
  - VENOUS INSUFFICIENCY [None]
